FAERS Safety Report 25170007 (Version 5)
Quarter: 2025Q3

REPORT INFORMATION
  Report Type: Spontaneous
  Country: US (occurrence: US)
  Receive Date: 20250407
  Receipt Date: 20250710
  Transmission Date: 20251021
  Serious: Yes (Other)
  Sender: NOVARTIS
  Company Number: US-002147023-NVSC2025US053395

PATIENT
  Age: 35 Year
  Sex: Female

DRUGS (6)
  1. TAFINLAR [Suspect]
     Active Substance: DABRAFENIB MESYLATE
     Indication: Malignant melanoma
     Dosage: 150 MG, BID (BY MOUTH)
     Route: 048
     Dates: start: 202501
  2. TAFINLAR [Suspect]
     Active Substance: DABRAFENIB MESYLATE
     Indication: Malignant lymphoid neoplasm
     Dosage: 75 MG, BID (EVERY 12 HOURS)
     Route: 048
     Dates: start: 202501
  3. TAFINLAR [Suspect]
     Active Substance: DABRAFENIB MESYLATE
     Dosage: 75 MG, BID
     Route: 048
     Dates: start: 20250317
  4. MEKINIST [Suspect]
     Active Substance: TRAMETINIB DIMETHYL SULFOXIDE
     Indication: Malignant melanoma
     Dosage: 2 MG, QD
     Route: 048
     Dates: start: 202501
  5. MEKINIST [Suspect]
     Active Substance: TRAMETINIB DIMETHYL SULFOXIDE
     Indication: Malignant lymphoid neoplasm
     Dosage: 1.5 MG, QD
     Route: 048
     Dates: start: 202501
  6. MEKINIST [Suspect]
     Active Substance: TRAMETINIB DIMETHYL SULFOXIDE
     Dosage: UNK, QD, 1 DAILY
     Route: 048
     Dates: start: 20250317

REACTIONS (7)
  - Uveitis [Unknown]
  - Vision blurred [Unknown]
  - Rash [Unknown]
  - Arthralgia [Unknown]
  - Peripheral swelling [Recovered/Resolved]
  - Pain in extremity [Unknown]
  - Decreased activity [Unknown]

NARRATIVE: CASE EVENT DATE: 20250101
